FAERS Safety Report 5012114-6 (Version None)
Quarter: 2006Q2

REPORT INFORMATION
  Report Type: 
  Country: None (occurrence: None)
  Receive Date: 20060524
  Receipt Date: 20060515
  Transmission Date: 20061013
  Serious: Yes (Other)
  Sender: FDA-Public Use
  Company Number: 2006064400

PATIENT
  Sex: Female

DRUGS (1)
  1. ZOLOFT [Suspect]
     Indication: BIPOLAR I DISORDER
     Dosage: 50 MG (50 MG, 1 IN 1 D)

REACTIONS (7)
  - CRYING [None]
  - DEPRESSED MOOD [None]
  - DRUG EXPOSURE DURING PREGNANCY [None]
  - FEELING ABNORMAL [None]
  - IRRITABILITY [None]
  - POST-TRAUMATIC STRESS DISORDER [None]
  - UTERINE LEIOMYOMA [None]
